FAERS Safety Report 5744585-1 (Version None)
Quarter: 2008Q2

REPORT INFORMATION
  Report Type: 
  Country: None (occurrence: None)
  Receive Date: 20080520
  Receipt Date: 20070726
  Transmission Date: 20081010
  Serious: No
  Sender: FDA-Public Use
  Company Number: US-ABBOTT-07P-163-0376212-00

PATIENT
  Sex: Male
  Weight: 27.24 kg

DRUGS (3)
  1. AZMACORT [Suspect]
     Indication: ASTHMA
     Route: 055
     Dates: start: 20070301
  2. MONTELUKAST SODIUM [Concomitant]
     Indication: ASTHMA
  3. LORATADINE [Concomitant]
     Indication: ASTHMA

REACTIONS (2)
  - AGGRESSION [None]
  - DYSARTHRIA [None]
